FAERS Safety Report 8547413-4 (Version None)
Quarter: 2012Q3

REPORT INFORMATION
  Report Type: 
  Country: None (occurrence: None)
  Receive Date: 20120727
  Receipt Date: 20120410
  Transmission Date: 20120928
  Serious: No
  Sender: FDA-Public Use
  Company Number: US-ASTRAZENECA-2012SE23715

PATIENT
  Sex: Male

DRUGS (1)
  1. SEROQUEL [Suspect]
     Indication: ASPERGER'S DISORDER
     Route: 048

REACTIONS (3)
  - INTENTIONAL DRUG MISUSE [None]
  - PRURITUS [None]
  - OFF LABEL USE [None]
